FAERS Safety Report 17060363 (Version 1)
Quarter: 2019Q4

REPORT INFORMATION
  Report Type: Spontaneous
  Country: CZ (occurrence: CZ)
  Receive Date: 20191121
  Receipt Date: 20191121
  Transmission Date: 20200122
  Serious: Yes (Other)
  Sender: FDA-Public Use
  Company Number: CZ-MYLANLABS-2019M1111053

PATIENT
  Sex: Male

DRUGS (7)
  1. OXALIPLATIN. [Suspect]
     Active Substance: OXALIPLATIN
     Indication: ADENOCARCINOMA OF COLON
     Dosage: UNK
     Route: 065
     Dates: end: 201508
  2. FOLINIC ACID [Suspect]
     Active Substance: LEUCOVORIN
     Indication: ADENOCARCINOMA OF COLON
     Dosage: UNK
     Route: 065
     Dates: end: 201508
  3. FOLINIC ACID [Suspect]
     Active Substance: LEUCOVORIN
     Dosage: UNK
     Route: 065
     Dates: end: 201707
  4. BEVACIZUMAB. [Suspect]
     Active Substance: BEVACIZUMAB
     Indication: ADENOCARCINOMA OF COLON
     Dosage: UNK
     Route: 065
     Dates: end: 201508
  5. FLUOROURACIL. [Suspect]
     Active Substance: FLUOROURACIL
     Indication: ADENOCARCINOMA OF COLON
     Dosage: UNK
     Route: 065
     Dates: end: 201508
  6. FLUOROURACIL. [Suspect]
     Active Substance: FLUOROURACIL
     Dosage: UNK
     Route: 065
     Dates: end: 201707
  7. IRINOTECAN [Suspect]
     Active Substance: IRINOTECAN
     Indication: ADENOCARCINOMA OF COLON
     Dosage: UNK
     Route: 065
     Dates: end: 201707

REACTIONS (8)
  - Weight decreased [Unknown]
  - Malignant neoplasm progression [Unknown]
  - Diarrhoea [Unknown]
  - Skin toxicity [Unknown]
  - Alopecia [Unknown]
  - Fatigue [Unknown]
  - Polyneuropathy [Unknown]
  - Adenocarcinoma of colon [Recovering/Resolving]

NARRATIVE: CASE EVENT DATE: 2015
